FAERS Safety Report 14543068 (Version 5)
Quarter: 2019Q1

REPORT INFORMATION
  Report Type: Spontaneous
  Country: CA (occurrence: CA)
  Receive Date: 20180216
  Receipt Date: 20190326
  Transmission Date: 20190417
  Serious: Yes (Hospitalization, Other)
  Sender: FDA-Public Use
  Company Number: CA-PFIZER INC-2018065572

PATIENT
  Age: 9 Month
  Sex: Female

DRUGS (2)
  1. AMOXYCILLIN/CLAVULANIC ACID [Suspect]
     Active Substance: AMOXICILLIN\CLAVULANIC ACID
     Indication: ESCHERICHIA INFECTION
     Dosage: UNK
     Route: 065
  2. CEFTRIAXONE SODIUM. [Suspect]
     Active Substance: CEFTRIAXONE SODIUM
     Indication: ESCHERICHIA INFECTION
     Dosage: 640 MG, SINGLE
     Route: 042

REACTIONS (5)
  - Coagulopathy [Recovering/Resolving]
  - Prothrombin time prolonged [Recovering/Resolving]
  - Activated partial thromboplastin time prolonged [Recovering/Resolving]
  - Epistaxis [Recovering/Resolving]
  - Haemorrhage [Unknown]
